FAERS Safety Report 9546138 (Version 1)
Quarter: 2013Q3

REPORT INFORMATION
  Report Type: Spontaneous
  Country: US (occurrence: US)
  Receive Date: 20130923
  Receipt Date: 20130923
  Transmission Date: 20140515
  Serious: No
  Sender: FDA-Public Use
  Company Number: US-GLAXOSMITHKLINE-A1020310A

PATIENT
  Age: 86 Year
  Sex: Female

DRUGS (6)
  1. ABREVA [Suspect]
     Indication: ORAL HERPES
     Dates: start: 20130415, end: 20130416
  2. COREG [Concomitant]
  3. LOTREL [Concomitant]
  4. ZOCOR [Concomitant]
  5. LORATADINE [Concomitant]
  6. DIAZEPAM [Concomitant]

REACTIONS (2)
  - Application site pruritus [Recovered/Resolved]
  - Drug administration error [Unknown]
